FAERS Safety Report 7185188-4 (Version None)
Quarter: 2010Q4

REPORT INFORMATION
  Report Type: 
  Country: None (occurrence: None)
  Receive Date: 20101222
  Receipt Date: 20101217
  Transmission Date: 20110411
  Serious: Yes (Hospitalization)
  Sender: FDA-Public Use
  Company Number: US-SHIRE-SPV1-2010-02200

PATIENT
  Sex: Male
  Weight: 96.145 kg

DRUGS (2)
  1. LIALDA [Suspect]
     Indication: COLITIS ULCERATIVE
     Dosage: UNK MG, 1X/DAY:QD
     Route: 048
     Dates: start: 20100601, end: 20100707
  2. URSODIOL [Concomitant]
     Indication: CHOLELITHIASIS
     Dosage: 300 MG, 2X/DAY:BID
     Route: 048

REACTIONS (1)
  - IDIOPATHIC THROMBOCYTOPENIC PURPURA [None]
